FAERS Safety Report 4688890-9 (Version None)
Quarter: 2005Q2

REPORT INFORMATION
  Report Type: 
  Country: None (occurrence: None)
  Receive Date: 20050610
  Receipt Date: 20050531
  Transmission Date: 20051028
  Serious: Yes (Life-Threatening)
  Sender: FDA-Public Use
  Company Number: GXKR2005GB01154

PATIENT
  Age: 69 Year
  Sex: Male

DRUGS (9)
  1. FUROSEMIDE [Suspect]
     Indication: HYPERTENSION
     Dosage: 40 MG, BID,ORAL
     Route: 048
  2. SPIRONOLACTONE [Suspect]
     Indication: HYPERTENSION
     Dosage: 25 MG, BID,ORAL
     Route: 048
     Dates: end: 20050507
  3. DIGOXIN [Concomitant]
  4. LANSOPRAZOLE (LANSPRAZOLE) [Concomitant]
  5. METFORMIN HCL [Concomitant]
  6. NEBIVOLOL (NEBIVOLOL) [Concomitant]
  7. RAMIPRIL [Concomitant]
  8. SIMVASTATIN [Concomitant]
  9. WARFARIN SODIUM [Concomitant]

REACTIONS (1)
  - BLOOD POTASSIUM INCREASED [None]
